FAERS Safety Report 5646985-7 (Version None)
Quarter: 2008Q1

REPORT INFORMATION
  Report Type: 
  Country: None (occurrence: None)
  Receive Date: 20080303
  Receipt Date: 20080220
  Transmission Date: 20080703
  Serious: Yes (Life-Threatening, Hospitalization)
  Sender: FDA-Public Use
  Company Number: B0507464A

PATIENT
  Age: 34 Year
  Sex: Male

DRUGS (1)
  1. ZYBAN [Suspect]
     Route: 048
     Dates: end: 20050822

REACTIONS (10)
  - ALLERGIC RESPIRATORY SYMPTOM [None]
  - ARTHRALGIA [None]
  - ASTHMA [None]
  - BODY TEMPERATURE INCREASED [None]
  - DYSPNOEA [None]
  - HYPERSENSITIVITY [None]
  - OESOPHAGEAL RUPTURE [None]
  - PRURITUS [None]
  - SKIN SWELLING [None]
  - URTICARIA [None]
